FAERS Safety Report 25686042 (Version 1)
Quarter: 2025Q3

REPORT INFORMATION
  Report Type: Spontaneous
  Country: US (occurrence: None)
  Receive Date: 20250815
  Receipt Date: 20250815
  Transmission Date: 20251020
  Serious: Yes (Hospitalization)
  Sender: FDA-CTU
  Company Number: None

PATIENT
  Age: 59 Year
  Sex: Male

DRUGS (11)
  1. TACROLIMUS [Suspect]
     Active Substance: TACROLIMUS
     Indication: Liver transplant
     Dosage: 0.5 MG DAILY ORAL
     Route: 048
     Dates: start: 20241227
  2. TACROLIMUS [Suspect]
     Active Substance: TACROLIMUS
     Indication: Liver transplant
     Dosage: 1 MG DAILY ORAL
     Route: 048
     Dates: start: 20240510
  3. TAMSULOSIN [Concomitant]
     Active Substance: TAMSULOSIN
     Dates: start: 20240427
  4. ANORO ELLIPTA [Concomitant]
     Active Substance: UMECLIDINIUM BROMIDE\VILANTEROL TRIFENATATE
     Dates: start: 20240221
  5. FAMOTIDINE [Concomitant]
     Active Substance: FAMOTIDINE
     Dates: start: 20240314
  6. Novolin N U-100 [Concomitant]
     Dates: start: 20230425
  7. OMEPRAZOLE [Concomitant]
     Active Substance: OMEPRAZOLE
     Dates: start: 20250312
  8. Ondasetron ODT 4mg [Concomitant]
     Dates: start: 20240523
  9. PREGABALIN [Concomitant]
     Active Substance: PREGABALIN
     Dates: start: 20240307
  10. ROPINIROLE [Concomitant]
     Active Substance: ROPINIROLE
     Dates: start: 20240427
  11. LIDOCAINE 5% [Concomitant]
     Active Substance: LIDOCAINE
     Dates: start: 20250809

REACTIONS (4)
  - Tooth infection [None]
  - Pyrexia [None]
  - Localised infection [None]
  - Therapeutic response unexpected [None]

NARRATIVE: CASE EVENT DATE: 20250809
